FAERS Safety Report 8036641-2 (Version None)
Quarter: 2012Q1

REPORT INFORMATION
  Report Type: 
  Country: None (occurrence: None)
  Receive Date: 20120111
  Receipt Date: 20110520
  Transmission Date: 20120608
  Serious: Yes (Other)
  Sender: FDA-Public Use
  Company Number: US-ROCHE-1028943

PATIENT

DRUGS (4)
  1. AVASTIN [Suspect]
  2. AVASTIN [Suspect]
     Indication: SQUAMOUS CELL CARCINOMA
  3. AVASTIN [Suspect]
  4. CISPLATIN [Suspect]
     Indication: SQUAMOUS CELL CARCINOMA

REACTIONS (7)
  - DYSPHAGIA [None]
  - TUMOUR PAIN [None]
  - MUCOSAL INFLAMMATION [None]
  - NAUSEA [None]
  - LYMPHOPENIA [None]
  - WEIGHT DECREASED [None]
  - VOMITING [None]
